FAERS Safety Report 24648085 (Version 1)
Quarter: 2024Q4

REPORT INFORMATION
  Report Type: Report from Study
  Country: KR (occurrence: KR)
  Receive Date: 20241121
  Receipt Date: 20241121
  Transmission Date: 20250115
  Serious: Yes (Life-Threatening, Hospitalization, Other)
  Sender: AMGEN
  Company Number: KR-AMGEN-KORNI2024228167

PATIENT
  Age: 64 Year
  Sex: Female

DRUGS (9)
  1. ROMOSOZUMAB [Suspect]
     Active Substance: ROMOSOZUMAB
     Indication: Osteoporosis
     Dosage: 210 UNK QMO
     Route: 058
     Dates: start: 20240703, end: 20240805
  2. CALCIUM CARBONATE\CHOLECALCIFEROL [Concomitant]
     Active Substance: CALCIUM CARBONATE\CHOLECALCIFEROL
     Dosage: 1 UNK QD
     Route: 048
     Dates: start: 20210629
  3. HYDROXYCHLOROQUINE SULFATE [Concomitant]
     Active Substance: HYDROXYCHLOROQUINE SULFATE
     Dosage: 1 UNK BID
     Route: 048
     Dates: start: 20240430
  4. AMITRIPTYLINE HYDROCHLORIDE [Concomitant]
     Active Substance: AMITRIPTYLINE HYDROCHLORIDE
     Dosage: 1 UNK QD
     Route: 048
     Dates: start: 20140212
  5. PREDNISOLONE [Concomitant]
     Active Substance: PREDNISOLONE
     Dosage: 0.5 UNK QD
     Route: 048
     Dates: start: 20141111
  6. CELEBREX [Concomitant]
     Active Substance: CELECOXIB
     Dosage: 1 UNK BID
     Route: 048
     Dates: start: 20190702
  7. JOINS [Concomitant]
     Dosage: 1 UNK BID
     Route: 048
     Dates: start: 20190702
  8. TACOPEN [Concomitant]
     Dosage: 1 UNK PRN
     Dates: start: 20180619
  9. ACTONEL EC [Concomitant]
     Dosage: 1 UNK QW
     Route: 048
     Dates: start: 20240125, end: 20240806

REACTIONS (2)
  - Cardiac failure [Recovering/Resolving]
  - Cardiac arrest [Recovered/Resolved]

NARRATIVE: CASE EVENT DATE: 20240816
